FAERS Safety Report 9970349 (Version 1)
Quarter: 2014Q1

REPORT INFORMATION
  Report Type: Report from Study
  Country: US (occurrence: US)
  Receive Date: 20140306
  Receipt Date: 20140306
  Transmission Date: 20141002
  Serious: No
  Sender: FDA-Public Use
  Company Number: US-ABBVIE-13P-163-1151627-00

PATIENT
  Sex: Male
  Weight: 127.12 kg

DRUGS (3)
  1. HUMIRA [Suspect]
     Indication: COLITIS ULCERATIVE
     Dates: start: 20130606, end: 20130606
  2. HUMIRA [Suspect]
     Dates: start: 20130620, end: 20130620
  3. HUMIRA [Suspect]
     Dates: start: 20130704, end: 20130816

REACTIONS (11)
  - Contusion [Recovering/Resolving]
  - Joint stiffness [Recovering/Resolving]
  - Bone pain [Recovering/Resolving]
  - Headache [Recovered/Resolved]
  - Muscular weakness [Recovering/Resolving]
  - Epistaxis [Recovered/Resolved]
  - Gastrointestinal inflammation [Unknown]
  - Gait disturbance [Recovering/Resolving]
  - Vision blurred [Recovered/Resolved]
  - Rash [Recovering/Resolving]
  - Pruritus [Not Recovered/Not Resolved]
